FAERS Safety Report 7336423-0 (Version None)
Quarter: 2011Q1

REPORT INFORMATION
  Report Type: 
  Country: None (occurrence: None)
  Receive Date: 20110307
  Receipt Date: 20110223
  Transmission Date: 20110831
  Serious: Yes (Death)
  Sender: FDA-Public Use
  Company Number: JP-BAYER-2011-007401

PATIENT
  Sex: Male
  Weight: 35 kg

DRUGS (12)
  1. TAKEPRON [Concomitant]
     Indication: REFLUX OESOPHAGITIS
     Dosage: 15 MG, QD
     Route: 048
     Dates: start: 20081024, end: 20081121
  2. GLUCOSAN [Concomitant]
     Indication: HYPOKALAEMIA
     Dosage: 1 G, QD
     Route: 048
     Dates: start: 20081024, end: 20081121
  3. ASPIRIN \^BAYER\^ (JP ASPIRIN) [Suspect]
     Indication: CEREBRAL INFARCTION
     Dosage: 100 MG, QD
     Route: 048
     Dates: start: 20081024, end: 20081121
  4. LASIX [Concomitant]
     Indication: CARDIAC FAILURE
     Dosage: 0.25 G, QD
     Route: 048
     Dates: start: 20081024, end: 20081121
  5. SYMMETREL [Concomitant]
     Indication: CEREBRAL INFARCTION
     Dosage: 0.5 G, BID
     Route: 048
     Dates: start: 20081024, end: 20081121
  6. RADICUT [Suspect]
     Indication: CEREBRAL INFARCTION
     Dosage: DAILY DOSE 60 MG
     Route: 042
     Dates: start: 20081023, end: 20081030
  7. PENTCILLIN [Suspect]
     Indication: PNEUMONIA
     Dosage: DAILY DOSE 3 G
     Route: 042
     Dates: start: 20081028, end: 20081103
  8. FERROUS CITRATE [Concomitant]
     Indication: IRON DEFICIENCY ANAEMIA
     Dosage: 0.6 G, QD
     Route: 048
     Dates: start: 20081024, end: 20081121
  9. ARTIST [Concomitant]
     Indication: CARDIAC FAILURE
     Dosage: 1.25 MG, QD
     Route: 048
     Dates: start: 20081024, end: 20081121
  10. WARFARIN SODIUM [Concomitant]
     Indication: CEREBRAL INFARCTION
     Dosage: 2 MG, QD
     Route: 048
     Dates: start: 20081024, end: 20081121
  11. LAC B [Concomitant]
     Indication: GASTROENTERITIS
     Dosage: 1 G, TID
     Route: 048
     Dates: start: 20081024, end: 20081121
  12. MAGNESIUM OXIDE [Concomitant]
     Indication: CONSTIPATION
     Dosage: 0.5 G, QD
     Route: 048
     Dates: start: 20081024, end: 20081121

REACTIONS (8)
  - PRURITUS [None]
  - PYREXIA [None]
  - PNEUMONIA [None]
  - HEPATITIS FULMINANT [None]
  - DEPRESSED LEVEL OF CONSCIOUSNESS [None]
  - DEHYDRATION [None]
  - HEPATIC FUNCTION ABNORMAL [None]
  - TREMOR [None]
